FAERS Safety Report 10220891 (Version 1)
Quarter: 2014Q2

REPORT INFORMATION
  Report Type: Spontaneous
  Country: US (occurrence: None)
  Receive Date: 20140605
  Receipt Date: 20140605
  Transmission Date: 20141212
  Serious: Yes (Other)
  Sender: FDA-Public Use
  Company Number: None

PATIENT
  Age: 9 Year
  Sex: Male

DRUGS (1)
  1. EXJADE 500 MG [Suspect]
     Indication: IRON OVERLOAD
     Route: 048
     Dates: start: 20140513

REACTIONS (2)
  - Ocular icterus [None]
  - Chromaturia [None]
